FAERS Safety Report 9795511 (Version 1)
Quarter: 2014Q1

REPORT INFORMATION
  Report Type: Report from Study
  Country: CA (occurrence: CA)
  Receive Date: 20140103
  Receipt Date: 20140103
  Transmission Date: 20141002
  Serious: Yes (Other)
  Sender: FDA-Public Use
  Company Number: CA-JNJFOC-20131217621

PATIENT
  Age: 17 Year
  Sex: Female
  Weight: 24.63 kg

DRUGS (4)
  1. REMICADE [Suspect]
     Indication: CROHN^S DISEASE
     Route: 042
  2. BUDESONIDE [Concomitant]
     Dosage: AS NEEDED
     Route: 065
  3. VENTOLIN [Concomitant]
     Dosage: AS NEEDED
     Route: 065
  4. BENADRYL [Concomitant]
     Dosage: AS NEEDED
     Route: 065

REACTIONS (2)
  - Deafness bilateral [Unknown]
  - Sinus congestion [Unknown]
